FAERS Safety Report 8425308-4 (Version None)
Quarter: 2012Q2

REPORT INFORMATION
  Report Type: 
  Country: None (occurrence: None)
  Receive Date: 20120604
  Receipt Date: 20120521
  Transmission Date: 20120825
  Serious: Yes (Other)
  Sender: FDA-Public Use
  Company Number: 2012P1031203

PATIENT
  Age: 42 Year
  Sex: Male

DRUGS (7)
  1. PREDNISONE TAB [Concomitant]
  2. GENTAMICIN [Concomitant]
  3. VANCOMYCIN [Suspect]
     Indication: BACTEROIDES INFECTION
  4. CYCLOSPORINE [Concomitant]
  5. CIPROFLOXACIN [Concomitant]
  6. CEFTRIAXONE [Concomitant]
  7. PIPERACILLIN AND TAZOBACTAM [Concomitant]

REACTIONS (6)
  - VASCULITIS NECROTISING [None]
  - HENOCH-SCHONLEIN PURPURA [None]
  - LEUKOCYTOCLASTIC VASCULITIS [None]
  - ARTHRITIS [None]
  - HAEMATURIA [None]
  - ASCITES [None]
